FAERS Safety Report 6201914-2 (Version None)
Quarter: 2009Q2

REPORT INFORMATION
  Report Type: 
  Country: None (occurrence: None)
  Receive Date: 20090526
  Receipt Date: 20090518
  Transmission Date: 20091009
  Serious: Yes (Other)
  Sender: FDA-Public Use
  Company Number: PHHY2008BR31049

PATIENT
  Sex: Male
  Weight: 65 kg

DRUGS (6)
  1. FORASEQ [Suspect]
     Indication: BRONCHITIS
     Dosage: 12/400 MCG, 1 CAPSULE/DAY
     Dates: start: 20050101
  2. PREDSIM [Concomitant]
     Indication: BRONCHITIS
     Dosage: 20 MG, QD
     Route: 048
  3. PREDSIM [Concomitant]
     Dosage: 10 MG, 1 TABLET/DAY
  4. PREDSIM [Concomitant]
     Dosage: 5 MG, 1 TABLET/DAY
     Route: 048
  5. MOTILIUM [Concomitant]
     Indication: NAUSEA
     Dosage: 10 MG, TID
     Route: 048
  6. OMEPRAZOLE [Concomitant]
     Indication: NAUSEA
     Dosage: 40 MG, UNK
     Route: 048

REACTIONS (8)
  - BACK PAIN [None]
  - BONE LESION [None]
  - BRONCHITIS [None]
  - DEVICE FAILURE [None]
  - INFLUENZA [None]
  - NAUSEA [None]
  - PRODUCT QUALITY ISSUE [None]
  - THROAT IRRITATION [None]
